FAERS Safety Report 25819627 (Version 1)
Quarter: 2025Q3

REPORT INFORMATION
  Report Type: Spontaneous
  Country: US (occurrence: US)
  Receive Date: 20250918
  Receipt Date: 20250918
  Transmission Date: 20251021
  Serious: No
  Sender: MYLAN
  Company Number: US-MYLANLABS-2025M1077202

PATIENT
  Age: 61 Year
  Sex: Female
  Weight: 58.51 kg

DRUGS (8)
  1. ESTRADIOL TRANSDERMAL SYSTEM [Suspect]
     Active Substance: ESTRADIOL
     Indication: Osteoporosis
     Dosage: 0.025 MILLIGRAM, QD (PER DAY, TWICE WEEKLY)
     Dates: start: 2025
  2. ESTRADIOL TRANSDERMAL SYSTEM [Suspect]
     Active Substance: ESTRADIOL
     Dosage: 0.025 MILLIGRAM, QD (PER DAY, TWICE WEEKLY)
     Route: 062
     Dates: start: 2025
  3. ESTRADIOL TRANSDERMAL SYSTEM [Suspect]
     Active Substance: ESTRADIOL
     Dosage: 0.025 MILLIGRAM, QD (PER DAY, TWICE WEEKLY)
     Route: 062
     Dates: start: 2025
  4. ESTRADIOL TRANSDERMAL SYSTEM [Suspect]
     Active Substance: ESTRADIOL
     Dosage: 0.025 MILLIGRAM, QD (PER DAY, TWICE WEEKLY)
     Dates: start: 2025
  5. PROGESTERONE [Concomitant]
     Active Substance: PROGESTERONE
     Indication: Osteoporosis
  6. PROGESTERONE [Concomitant]
     Active Substance: PROGESTERONE
     Route: 065
  7. PROGESTERONE [Concomitant]
     Active Substance: PROGESTERONE
     Route: 065
  8. PROGESTERONE [Concomitant]
     Active Substance: PROGESTERONE

REACTIONS (3)
  - Musculoskeletal chest pain [Unknown]
  - Muscle strain [Unknown]
  - Product substitution issue [Unknown]

NARRATIVE: CASE EVENT DATE: 20250801
